FAERS Safety Report 13584480 (Version 1)
Quarter: 2017Q2

REPORT INFORMATION
  Report Type: Spontaneous
  Country: US (occurrence: US)
  Receive Date: 20170525
  Receipt Date: 20170525
  Transmission Date: 20170830
  Serious: Yes (Hospitalization)
  Sender: FDA-Public Use
  Company Number: None

PATIENT
  Age: 64 Year
  Sex: Male
  Weight: 74.39 kg

DRUGS (1)
  1. GILOTRIF [Suspect]
     Active Substance: AFATINIB
     Indication: PENILE SQUAMOUS CELL CARCINOMA
     Route: 048
     Dates: start: 20170302, end: 20170520

REACTIONS (8)
  - Diarrhoea [None]
  - Procedural site reaction [None]
  - Nausea [None]
  - Disease progression [None]
  - Vomiting [None]
  - Fatigue [None]
  - Scrotal abscess [None]
  - Mass [None]

NARRATIVE: CASE EVENT DATE: 20170521
